FAERS Safety Report 6717410-X (Version None)
Quarter: 2010Q2

REPORT INFORMATION
  Report Type: 
  Country: None (occurrence: None)
  Receive Date: 20100503
  Receipt Date: 20100416
  Transmission Date: 20101027
  Serious: Yes (Other)
  Sender: FDA-Public Use
  Company Number: 2010S1002322

PATIENT
  Sex: Male

DRUGS (6)
  1. PHOSPHOSODA FLAVOR NOT SPECIFIED [Suspect]
     Indication: COLONOSCOPY
     Dosage: 135 ML; TOTAL; PO
     Route: 048
     Dates: start: 20080907, end: 20080907
  2. PHOSPHOSODA [Suspect]
     Indication: SURGERY
     Dosage: 135 ML; TOTAL PO
     Route: 048
     Dates: start: 20080921, end: 20080921
  3. PHOSPHOSODA FLAVOR NOT SPECIFIED [Suspect]
     Indication: COLONOSCOPY
     Dosage: 135 ML;TOTAL PO
     Dates: start: 20080907, end: 20080907
  4. PHOSPHOSODA FLAVOR NOT SPECIFIED [Suspect]
     Indication: COLONOSCOPY
     Dosage: 135 ML;TOTAL PO
     Dates: start: 20080921, end: 20080921
  5. PHOSPHOSODA FLAVOR NOT SPECIFIED [Suspect]
     Dosage: 135 ML;TOTAL PO
     Route: 048
     Dates: start: 20080907, end: 20080907
  6. PHOSPHOSODA FLAVOR NOT SPECIFIED [Suspect]
     Dosage: 135 ML;TOTAL PO
     Route: 048
     Dates: start: 20080921, end: 20080921

REACTIONS (4)
  - HAEMODIALYSIS [None]
  - NEPHROCALCINOSIS [None]
  - RENAL FAILURE ACUTE [None]
  - RENAL TUBULAR DISORDER [None]
